FAERS Safety Report 9778905 (Version 2)
Quarter: 2014Q3

REPORT INFORMATION
  Report Type: Spontaneous
  Country: US (occurrence: US)
  Receive Date: 20131223
  Receipt Date: 20140825
  Transmission Date: 20150326
  Serious: Yes (Hospitalization, Other)
  Sender: FDA-Public Use
  Company Number: US-009507513-1312USA010476

PATIENT
  Sex: Female
  Weight: 106.12 kg

DRUGS (1)
  1. NUVARING [Suspect]
     Active Substance: ETHINYL ESTRADIOL\ETONOGESTREL
     Dosage: UNK
     Route: 067
     Dates: start: 20120106, end: 201206

REACTIONS (5)
  - Cholestasis [Unknown]
  - Chest pain [Unknown]
  - Presyncope [Unknown]
  - Pulmonary embolism [Unknown]
  - Asthma [Unknown]

NARRATIVE: CASE EVENT DATE: 201205
